FAERS Safety Report 16453316 (Version 1)
Quarter: 2019Q2

REPORT INFORMATION
  Report Type: Spontaneous
  Country: US (occurrence: US)
  Receive Date: 20190619
  Receipt Date: 20190619
  Transmission Date: 20190711
  Serious: No
  Sender: FDA-Public Use
  Company Number: US-SA-2019SA162889

PATIENT
  Sex: Female

DRUGS (4)
  1. PANTOPRAZOLE [Suspect]
     Active Substance: PANTOPRAZOLE
     Indication: PRODUCT USED FOR UNKNOWN INDICATION
  2. PREVACID [Suspect]
     Active Substance: LANSOPRAZOLE
  3. FAMOTIDINE. [Suspect]
     Active Substance: FAMOTIDINE
  4. PLAVIX [Suspect]
     Active Substance: CLOPIDOGREL BISULFATE

REACTIONS (3)
  - Gastric disorder [Recovering/Resolving]
  - Abdominal distension [Recovering/Resolving]
  - Malaise [Recovering/Resolving]
